FAERS Safety Report 5913267-5 (Version None)
Quarter: 2008Q4

REPORT INFORMATION
  Report Type: 
  Country: None (occurrence: None)
  Receive Date: 20081008
  Receipt Date: 20081008
  Transmission Date: 20090506
  Serious: Yes (Disabling)
  Sender: FDA-Public Use
  Company Number: None

PATIENT
  Age: 15 Year
  Sex: Female
  Weight: 90.7194 kg

DRUGS (1)
  1. STELAZINE [Suspect]
     Indication: SCHIZOPHRENIA
     Dosage: EVERY DAY- -?- PO
     Route: 048
     Dates: start: 19930701, end: 19960701

REACTIONS (3)
  - EYE DISORDER [None]
  - EYE ROLLING [None]
  - MUSCLE TIGHTNESS [None]
